FAERS Safety Report 14422384 (Version 1)
Quarter: 2018Q1

REPORT INFORMATION
  Report Type: Report from Study
  Country: None (occurrence: BR)
  Receive Date: 20180123
  Receipt Date: 20180123
  Transmission Date: 20180509
  Serious: Yes (Hospitalization, Other)
  Sender: FDA-Public Use
  Company Number: BR-ABBVIE-18K-020-2229646-00

PATIENT
  Sex: Female

DRUGS (1)
  1. HUMIRA [Suspect]
     Active Substance: ADALIMUMAB
     Indication: PSORIATIC ARTHROPATHY
     Route: 058

REACTIONS (7)
  - Malaise [Unknown]
  - Dizziness [Unknown]
  - Apparent death [Unknown]
  - Nausea [Unknown]
  - Dysstasia [Unknown]
  - Heart rate increased [Unknown]
  - Myocardial infarction [Unknown]
